FAERS Safety Report 9257143 (Version 1)
Quarter: 2013Q1

REPORT INFORMATION
  Report Type: Spontaneous
  Country: US (occurrence: None)
  Receive Date: 20121212
  Receipt Date: 20121212
  Transmission Date: 20140127
  Serious: No
  Sender: FDA-Public Use
  Company Number: 1209USA012029

PATIENT
  Sex: Male

DRUGS (3)
  1. VICTRELIS (BOCEPREVIR) [Suspect]
     Indication: HEPATITIS C
     Dosage: 800 MG, TID, ORAL
     Route: 048
     Dates: start: 20120427
  2. RIBASPHERE  (RIBAVIRIN) [Suspect]
     Indication: HEPATITIS C
  3. PEGASYS  (PEGINTERFERON ALFA-2A) [Suspect]
     Indication: HEPATITIS C

REACTIONS (6)
  - White blood cell count decreased [None]
  - Depression [None]
  - Decreased appetite [None]
  - Fatigue [None]
  - Fatigue [None]
  - Red blood cell count decreased [None]
